FAERS Safety Report 25111166 (Version 1)
Quarter: 2025Q1

REPORT INFORMATION
  Report Type: Spontaneous
  Country: CA (occurrence: CA)
  Receive Date: 20250324
  Receipt Date: 20250324
  Transmission Date: 20250408
  Serious: Yes (Death)
  Sender: Kenvue
  Company Number: CA-KENVUE-20250305641

PATIENT

DRUGS (1)
  1. TYLENOL [Suspect]
     Active Substance: ACETAMINOPHEN
     Indication: Product used for unknown indication
     Route: 065

REACTIONS (9)
  - Chest pain [Fatal]
  - Eye discharge [Fatal]
  - Hypophagia [Fatal]
  - Nausea [Fatal]
  - Ocular discomfort [Fatal]
  - Pain in extremity [Fatal]
  - Penile blister [Fatal]
  - Rash [Fatal]
  - Vomiting [Fatal]
